FAERS Safety Report 9919199 (Version 1)
Quarter: 2014Q1

REPORT INFORMATION
  Report Type: Spontaneous
  Country: US (occurrence: US)
  Receive Date: 20140224
  Receipt Date: 20140224
  Transmission Date: 20141002
  Serious: Yes (Disabling, Other)
  Sender: FDA-Public Use
  Company Number: US-SA-2014SA021546

PATIENT
  Age: 73 Year
  Sex: Female

DRUGS (2)
  1. LANTUS SOLOSTAR [Suspect]
     Indication: TYPE 2 DIABETES MELLITUS
     Dosage: PRODUCT START DATE -MANY YEARS AGO?DOSE-20 UNITS/36 UNITS
     Route: 051
  2. SOLOSTAR [Concomitant]

REACTIONS (3)
  - Skin ulcer [Unknown]
  - Hypokinesia [Unknown]
  - Disability [Unknown]
